FAERS Safety Report 10406879 (Version 1)
Quarter: 2014Q3

REPORT INFORMATION
  Report Type: Spontaneous
  Country: FR (occurrence: None)
  Receive Date: 20140821
  Receipt Date: 20140821
  Transmission Date: 20150326
  Serious: Yes (Hospitalization)
  Sender: FDA-Public Use
  Company Number: 7313833

PATIENT
  Age: 49 Year
  Sex: Female

DRUGS (4)
  1. PAROXETINE [Concomitant]
     Active Substance: PAROXETINE\PAROXETINE HYDROCHLORIDE
  2. LEVOTHYROX [Suspect]
     Active Substance: LEVOTHYROXINE
     Indication: PRODUCT USED FOR UNKNOWN INDICATION
     Dosage: SINGLE INTAKE (30 DF, 1 IN 1 D)
     Route: 048
     Dates: start: 20140516, end: 20140516
  3. VALSARTAN. [Concomitant]
     Active Substance: VALSARTAN
  4. IBUPROFEN (IBUPROFEN) (IBUPROFEN) [Concomitant]
     Active Substance: IBUPROFEN

REACTIONS (3)
  - Thyroxine free increased [None]
  - Suicide attempt [None]
  - Intentional overdose [None]

NARRATIVE: CASE EVENT DATE: 20140516
